FAERS Safety Report 19087562 (Version 1)
Quarter: 2021Q2

REPORT INFORMATION
  Report Type: Report from Study
  Country: None (occurrence: US)
  Receive Date: 20210402
  Receipt Date: 20210402
  Transmission Date: 20210717
  Serious: Yes (Other)
  Sender: FDA-Public Use
  Company Number: US-ABBVIE-21K-163-3832247-00

PATIENT
  Age: 52 Year
  Sex: Female

DRUGS (1)
  1. HUMIRA [Suspect]
     Active Substance: ADALIMUMAB
     Indication: RHEUMATOID ARTHRITIS
     Dosage: CF
     Route: 058
     Dates: start: 20200730

REACTIONS (5)
  - Diverticulitis [Unknown]
  - Spinal synovial cyst [Unknown]
  - Headache [Unknown]
  - Renal cyst haemorrhage [Unknown]
  - Radiculopathy [Unknown]

NARRATIVE: CASE EVENT DATE: 20210301
